FAERS Safety Report 7456039-5 (Version None)
Quarter: 2011Q2

REPORT INFORMATION
  Report Type: 
  Country: None (occurrence: None)
  Receive Date: 20110503
  Receipt Date: 20110502
  Transmission Date: 20111010
  Serious: Yes (Hospitalization, Other)
  Sender: FDA-Public Use
  Company Number: US-PFIZER INC-2011038320

PATIENT
  Sex: Female

DRUGS (3)
  1. CHANTIX [Suspect]
     Indication: SMOKING CESSATION THERAPY
     Dosage: 0.5MG/1MG
     Dates: start: 20080101, end: 20080301
  2. OXYCODONE [Concomitant]
     Indication: PAIN
     Dosage: UNK
     Dates: start: 20040101, end: 20100101
  3. NAPROXEN [Concomitant]
     Indication: PAIN
     Dosage: UNK
     Dates: start: 20040101, end: 20100101

REACTIONS (6)
  - NIGHTMARE [None]
  - ANXIETY [None]
  - DEPRESSION [None]
  - SUICIDE ATTEMPT [None]
  - AMNESIA [None]
  - SCAR [None]
